FAERS Safety Report 16952291 (Version 1)
Quarter: 2019Q4

REPORT INFORMATION
  Report Type: Spontaneous
  Country: US (occurrence: US)
  Receive Date: 20191022
  Receipt Date: 20191022
  Transmission Date: 20200122
  Serious: Yes (Death)
  Sender: FDA-Public Use
  Company Number: None

PATIENT
  Age: 50 Year
  Sex: Male

DRUGS (14)
  1. ALBUTEROL. [Concomitant]
     Active Substance: ALBUTEROL
  2. OXYCODONE [Concomitant]
     Active Substance: OXYCODONE
  3. ZANTAC [Concomitant]
     Active Substance: RANITIDINE HYDROCHLORIDE
  4. ZOFRAN [Concomitant]
     Active Substance: ONDANSETRON HYDROCHLORIDE
  5. DECADRON [Concomitant]
     Active Substance: DEXAMETHASONE
  6. LORAZEPAM. [Concomitant]
     Active Substance: LORAZEPAM
  7. SILDENAFIL. [Concomitant]
     Active Substance: SILDENAFIL
  8. METHOCARBAM [Concomitant]
     Active Substance: METHOCARBAMOL
  9. OXYCONTIN [Concomitant]
     Active Substance: OXYCODONE HYDROCHLORIDE
  10. TAGRISSO [Concomitant]
     Active Substance: OSIMERTINIB
  11. VIRTUSSIN [Concomitant]
  12. TAFINLAR [Suspect]
     Active Substance: DABRAFENIB MESYLATE
     Indication: LUNG CARCINOMA CELL TYPE UNSPECIFIED STAGE 0
     Route: 048
     Dates: start: 20190921, end: 20191014
  13. LISINOPRIL. [Concomitant]
     Active Substance: LISINOPRIL
  14. VOGELXO [Concomitant]
     Active Substance: TESTOSTERONE

REACTIONS (1)
  - Death [None]

NARRATIVE: CASE EVENT DATE: 20191014
